FAERS Safety Report 7204330-X (Version None)
Quarter: 2010Q4

REPORT INFORMATION
  Report Type: 
  Country: None (occurrence: None)
  Receive Date: 20101230
  Receipt Date: 20101222
  Transmission Date: 20110411
  Serious: Yes (Hospitalization)
  Sender: FDA-Public Use
  Company Number: FR-ROCHE-749945

PATIENT
  Sex: Male

DRUGS (6)
  1. MIRCERA [Suspect]
     Route: 042
  2. ADVAGRAF [Suspect]
     Indication: RENAL TRANSPLANT
     Route: 048
  3. COAPROVEL [Concomitant]
     Dosage: TABLET
  4. AMLODIPINE [Concomitant]
  5. LANZOR [Concomitant]
  6. UVEDOSE [Concomitant]

REACTIONS (1)
  - ISCHAEMIC STROKE [None]
